FAERS Safety Report 8351440-X (Version None)
Quarter: 2012Q2

REPORT INFORMATION
  Report Type: 
  Country: None (occurrence: None)
  Receive Date: 20120510
  Receipt Date: 20120504
  Transmission Date: 20120825
  Serious: Yes (Hospitalization)
  Sender: FDA-Public Use
  Company Number: GB-ROCHE-604218

PATIENT
  Sex: Male
  Weight: 77 kg

DRUGS (17)
  1. FERROUS SULFATE TAB [Concomitant]
  2. IMDUR [Concomitant]
  3. PERINDOPRIL ERBUMINE [Concomitant]
  4. LEFLUNOMIDE [Concomitant]
     Dates: start: 20070625, end: 20080225
  5. BENDROFLUAZIDE [Concomitant]
  6. AZATHIOPRINE [Concomitant]
  7. GTN SPRAY [Concomitant]
  8. NEXIUM [Concomitant]
  9. ACETAMINOPHEN AND CODEINE PHOSPHATE [Concomitant]
  10. CO-DYDRAMOL [Concomitant]
  11. FUROSEMIDE [Concomitant]
  12. NICORANDIL [Concomitant]
  13. ADIZEM [Concomitant]
  14. CLOPIDOGREL [Concomitant]
  15. MABTHERA [Suspect]
     Indication: RHEUMATOID ARTHRITIS
     Dosage: LAST DOSE 27 OCT 2011
     Route: 065
  16. CYCLOPHOSPHAMIDE [Concomitant]
  17. ATORVASTATIN CALCIUM [Concomitant]

REACTIONS (3)
  - ACUTE CORONARY SYNDROME [None]
  - ANGINA PECTORIS [None]
  - CHEST PAIN [None]
